FAERS Safety Report 4360809-X (Version None)
Quarter: 2004Q2

REPORT INFORMATION
  Report Type: 
  Country: None (occurrence: None)
  Receive Date: 20040517
  Receipt Date: 20040430
  Transmission Date: 20050107
  Serious: Yes (Hospitalization)
  Sender: FDA-Public Use
  Company Number: L04-ITA-02006-01

PATIENT
  Age: 34 Year
  Sex: Male

DRUGS (3)
  1. CARBAMAZEPINE [Suspect]
     Indication: CLONIC CONVULSION
     Dosage: 400 MG QD PO
     Route: 048
  2. CARBAMAZEPINE [Suspect]
     Indication: PARTIAL SEIZURES WITH SECONDARY GENERALISATION
     Dosage: 400 MG QD PO
     Route: 048
  3. DIAZEPAM [Concomitant]

REACTIONS (3)
  - CHOREOATHETOSIS [None]
  - DYSKINESIA [None]
  - SIMPLE PARTIAL SEIZURES [None]
